FAERS Safety Report 8197709-3 (Version None)
Quarter: 2012Q1

REPORT INFORMATION
  Report Type: 
  Country: None (occurrence: None)
  Receive Date: 20120309
  Receipt Date: 20120305
  Transmission Date: 20120608
  Serious: No
  Sender: FDA-Public Use
  Company Number: US-PFIZER INC-2012017190

PATIENT
  Sex: Female
  Weight: 58.05 kg

DRUGS (18)
  1. CALCIUM CARBONATE [Concomitant]
     Dosage: UNK
  2. OXYTOCIN [Concomitant]
     Dosage: UNK
  3. LASIX [Concomitant]
     Dosage: UNK
  4. OXYCONTIN [Concomitant]
     Dosage: UNK
  5. FERATAB [Concomitant]
     Dosage: UNK
  6. ASCORBIC ACID [Concomitant]
     Dosage: UNK
  7. COLACE [Concomitant]
     Dosage: UNK
  8. LOPRESSOR [Concomitant]
     Dosage: UNK
  9. ZOCOR [Concomitant]
     Dosage: UNK
  10. LEVOTHYROXINE [Concomitant]
     Dosage: UNK
  11. NEURONTIN [Suspect]
     Indication: PAIN
     Dosage: 100 MG, 1X/DAY
     Route: 048
     Dates: start: 20120104, end: 20120116
  12. HYDRALAZINE [Concomitant]
     Dosage: UNK
  13. INSULIN GLARGINE [Concomitant]
     Dosage: UNK
  14. STARLIX [Concomitant]
     Dosage: UNK
  15. NEURONTIN [Suspect]
     Indication: FIBROMYALGIA
     Dosage: 300 MG, 1X/DAY
     Route: 048
     Dates: start: 20120116, end: 20120118
  16. NEURONTIN [Suspect]
     Indication: NEURALGIA
     Dosage: 100 MG, 1X/DAY
     Route: 048
     Dates: start: 20120118, end: 20120119
  17. CELEXA [Concomitant]
     Dosage: UNK
  18. DETROL LA [Concomitant]
     Dosage: UNK

REACTIONS (5)
  - FATIGUE [None]
  - DRUG INEFFECTIVE [None]
  - HYPERSOMNIA [None]
  - SOMNOLENCE [None]
  - PAIN [None]
